FAERS Safety Report 17790998 (Version 1)
Quarter: 2020Q2

REPORT INFORMATION
  Report Type: Spontaneous
  Country: US (occurrence: US)
  Receive Date: 20200514
  Receipt Date: 20200514
  Transmission Date: 20200714
  Serious: Yes (Hospitalization, Congenital Anomaly)
  Sender: FDA-Public Use
  Company Number: None

PATIENT

DRUGS (1)
  1. PROPECIA [Suspect]
     Active Substance: FINASTERIDE

REACTIONS (4)
  - Scrotal disorder [None]
  - Congenital anomaly [None]
  - Cryptorchism [None]
  - Paternal exposure during pregnancy [None]

NARRATIVE: CASE EVENT DATE: 20191201
